FAERS Safety Report 19099688 (Version 3)
Quarter: 2021Q2

REPORT INFORMATION
  Report Type: Spontaneous
  Country: GR (occurrence: GR)
  Receive Date: 20210406
  Receipt Date: 20210518
  Transmission Date: 20210717
  Serious: Yes (Hospitalization)
  Sender: FDA-Public Use
  Company Number: GR-ROCHE-2803040

PATIENT
  Age: 54 Year
  Sex: Male

DRUGS (1)
  1. OCREVUS [Suspect]
     Active Substance: OCRELIZUMAB
     Indication: PRIMARY PROGRESSIVE MULTIPLE SCLEROSIS
     Dosage: LAST 3RD DOSE OF OCRELIZUMAB ON 03/JUL/2020
     Route: 065
     Dates: start: 201907

REACTIONS (4)
  - Lymphocyte count increased [Unknown]
  - Dysuria [Unknown]
  - Gait disturbance [Unknown]
  - COVID-19 [Unknown]
